FAERS Safety Report 8765928 (Version 1)
Quarter: 2012Q4

REPORT INFORMATION
  Report Type: Report from Study
  Country: JP (occurrence: JP)
  Receive Date: 20120904
  Receipt Date: 20120904
  Transmission Date: 20130627
  Serious: Yes (Death)
  Sender: FDA-Public Use
  Company Number: JP-009507513-1208JPN009013

PATIENT

DRUGS (20)
  1. TEMODAL [Suspect]
     Indication: GLIOBLASTOMA MULTIFORME
     Dosage: 75 mg/m2, qd
     Route: 048
     Dates: start: 20070219, end: 20070401
  2. TEMODAL [Suspect]
     Dosage: 150 mg/m2, qd
     Route: 048
     Dates: start: 20070430, end: 20070504
  3. TEMODAL [Suspect]
     Dosage: 150 mg/m2, qd
     Route: 048
     Dates: start: 20070528, end: 20070601
  4. TEMODAL [Suspect]
     Dosage: 150 mg/m2, qd
     Route: 048
     Dates: start: 20070702, end: 20070706
  5. TEMODAL [Suspect]
     Dosage: 100 mg/m2, qd
     Route: 048
     Dates: start: 20070802, end: 20070806
  6. TEMODAL [Suspect]
     Dosage: 100 mg/m2, qd
     Route: 048
     Dates: start: 20070911, end: 20070915
  7. TEMODAL [Suspect]
     Dosage: 100 mg/m2, qd
     Route: 048
     Dates: start: 20071110, end: 20071114
  8. TEMODAL [Suspect]
     Dosage: 100 mg/m2, qd
     Route: 048
     Dates: start: 20080212, end: 20080721
  9. TEMODAL [Suspect]
     Dosage: 100 mg/m2, qd
     Route: 048
     Dates: start: 20080818, end: 20080822
  10. TEMODAL [Suspect]
     Dosage: 100 mg/m2, qd
     Route: 048
     Dates: start: 20080918, end: 20090918
  11. TEMODAL [Suspect]
     Dosage: 150 mg/m2, qd
     Route: 048
     Dates: start: 20091012, end: 20091016
  12. TEMODAL [Suspect]
     Dosage: 150 mg/m2, qd
     Route: 048
     Dates: start: 20091109, end: 20091113
  13. TEMODAL [Suspect]
     Dosage: 150 mg/m2, qd
     Route: 048
     Dates: start: 20091207, end: 20091211
  14. TEMODAL [Suspect]
     Dosage: 150 mg/m2, qd
     Route: 048
     Dates: start: 20100104, end: 20100108
  15. TEMODAL [Suspect]
     Dosage: 100 mg/m2, UNK
     Route: 048
     Dates: start: 20071013, end: 20071017
  16. BAKTAR [Concomitant]
     Indication: ANTIFUNGAL PROPHYLAXIS
     Dosage: UNK
     Route: 048
     Dates: start: 20070219
  17. MAGNESIUM OXIDE [Concomitant]
     Dosage: UNK
     Route: 048
     Dates: start: 20070126
  18. NASEA [Concomitant]
     Indication: PROPHYLAXIS
     Dosage: UNK
     Route: 048
     Dates: start: 20070222
  19. DECADRON [Concomitant]
     Dosage: UNK
     Route: 048
     Dates: start: 20080107
  20. FAMOSTAGINE D [Concomitant]
     Indication: PROPHYLAXIS
     Dosage: UNK
     Route: 048
     Dates: start: 20080813

REACTIONS (22)
  - Disease progression [Fatal]
  - Vomiting [Recovering/Resolving]
  - White blood cell count decreased [Recovering/Resolving]
  - Platelet count decreased [Recovered/Resolved]
  - White blood cell count decreased [Recovering/Resolving]
  - Anaemia [Recovering/Resolving]
  - Hepatic function abnormal [Recovered/Resolved]
  - White blood cell count decreased [Recovering/Resolving]
  - Herpes zoster [Recovered/Resolved]
  - Dyspepsia [Recovering/Resolving]
  - Decreased appetite [Recovering/Resolving]
  - Neutrophil count decreased [Recovered/Resolved]
  - Neutrophil count decreased [Recovered/Resolved]
  - Neutrophil count decreased [Recovering/Resolving]
  - Neutrophil count decreased [Recovering/Resolving]
  - Decreased appetite [Recovered/Resolved]
  - Anaemia [Not Recovered/Not Resolved]
  - Lymphocyte count decreased [Recovered/Resolved]
  - Lymphocyte count decreased [Recovered/Resolved]
  - Constipation [Recovered/Resolved]
  - Pollakiuria [Not Recovered/Not Resolved]
  - Oedema peripheral [Not Recovered/Not Resolved]
